FAERS Safety Report 25792527 (Version 1)
Quarter: 2025Q3

REPORT INFORMATION
  Report Type: Report from Study
  Country: US (occurrence: US)
  Receive Date: 20250911
  Receipt Date: 20250911
  Transmission Date: 20251020
  Serious: Yes (Other)
  Sender: TEVA
  Company Number: US-TEVA-VS-3370961

PATIENT
  Age: 83 Year
  Sex: Female

DRUGS (7)
  1. AUSTEDO XR [Suspect]
     Active Substance: DEUTETRABENAZINE
     Indication: Tardive dyskinesia
     Route: 065
     Dates: start: 20250708, end: 2025
  2. AMLODIPINE [Concomitant]
     Active Substance: AMLODIPINE BESYLATE
     Indication: Hypertension
     Route: 065
  3. GABAPENTIN [Concomitant]
     Active Substance: GABAPENTIN
     Indication: Neuromyopathy
     Route: 065
  4. LOSARTAN [Concomitant]
     Active Substance: LOSARTAN
     Indication: Hypertension
     Route: 065
  5. PANTOPRAZOLE [Concomitant]
     Active Substance: PANTOPRAZOLE
     Indication: Gastrooesophageal reflux disease
     Route: 065
  6. PRAVASTATIN [Concomitant]
     Active Substance: PRAVASTATIN
     Indication: Cardiovascular disorder
     Route: 065
  7. REXULTI [Concomitant]
     Active Substance: BREXPIPRAZOLE
     Indication: Mental disorder
     Route: 065

REACTIONS (1)
  - Tremor [Unknown]

NARRATIVE: CASE EVENT DATE: 20250101
